FAERS Safety Report 11008995 (Version 1)
Quarter: 2015Q2

REPORT INFORMATION
  Report Type: Spontaneous
  Country: US (occurrence: US)
  Receive Date: 20150410
  Receipt Date: 20150410
  Transmission Date: 20150821
  Serious: No
  Sender: FDA-Public Use
  Company Number: US-BAUSCH-BL-2015-007219

PATIENT
  Age: 41 Year
  Sex: Male

DRUGS (2)
  1. ARESTIN [Suspect]
     Active Substance: MINOCYCLINE HYDROCHLORIDE
     Indication: PERIODONTAL DISEASE
     Dosage: 4-6 CARTRIDGES, ONE TIME DOSE
     Route: 050
     Dates: start: 20140306, end: 20140306
  2. AMOXICILLIN. [Concomitant]
     Active Substance: AMOXICILLIN
     Indication: TOOTHACHE
     Dosage: UNK
     Route: 048
     Dates: start: 20140306

REACTIONS (2)
  - Rash generalised [Not Recovered/Not Resolved]
  - Pruritus [Not Recovered/Not Resolved]

NARRATIVE: CASE EVENT DATE: 20140306
